FAERS Safety Report 9807482 (Version 1)
Quarter: 2014Q1

REPORT INFORMATION
  Report Type: Spontaneous
  Country: US (occurrence: US)
  Receive Date: 20140110
  Receipt Date: 20140110
  Transmission Date: 20141002
  Serious: No
  Sender: FDA-Public Use
  Company Number: US-SANOFI-AVENTIS-2013SA082660

PATIENT
  Age: 55 Year
  Sex: Male

DRUGS (8)
  1. PLAVIX [Suspect]
     Route: 065
  2. XARELTO [Suspect]
     Indication: ANTICOAGULANT THERAPY
     Route: 048
     Dates: start: 20130514
  3. XARELTO [Suspect]
     Indication: PULMONARY EMBOLISM
     Route: 048
     Dates: start: 20130514
  4. XARELTO [Suspect]
     Indication: HEMIPLEGIA
     Route: 048
     Dates: start: 20130514
  5. XARELTO [Suspect]
     Indication: CEREBROVASCULAR ACCIDENT
     Route: 048
     Dates: start: 20130514
  6. FISH OIL [Concomitant]
  7. PROBENECID [Concomitant]
  8. INSULIN [Concomitant]

REACTIONS (1)
  - Haematuria [Unknown]
